FAERS Safety Report 23945899 (Version 1)
Quarter: 2024Q2

REPORT INFORMATION
  Report Type: Other
  Country: CA (occurrence: CA)
  Receive Date: 20240606
  Receipt Date: 20240606
  Transmission Date: 20240716
  Serious: Yes (Death)
  Sender: FDA-Public Use
  Company Number: CA-Nuvo Pharmaceuticals Inc-2157839

PATIENT
  Age: 28 Year
  Sex: Female

DRUGS (17)
  1. DIAZEPAM [Suspect]
     Active Substance: DIAZEPAM
     Indication: Product used for unknown indication
     Route: 065
  2. DEPROPIONYLFENTANYL [Suspect]
     Active Substance: DEPROPIONYLFENTANYL
     Route: 065
  3. BROMAZOLAM [Suspect]
     Active Substance: BROMAZOLAM
     Route: 065
  4. NORFENTANYL [Suspect]
     Active Substance: NORFENTANYL
     Route: 065
  5. FENTANYL [Suspect]
     Active Substance: FENTANYL\FENTANYL CITRATE
     Route: 065
  6. METHAMPHETAMINE HYDROCHLORIDE [Suspect]
     Active Substance: METHAMPHETAMINE HYDROCHLORIDE
     Route: 065
  7. AMPHETAMINE SULFATE [Suspect]
     Active Substance: AMPHETAMINE SULFATE
     Route: 065
  8. DIPHENHYDRAMINE [Suspect]
     Active Substance: DIPHENHYDRAMINE
     Route: 065
  9. 11-HYDROXY-.DELTA.9-TETRAHYDROCANNABINOL [Suspect]
     Active Substance: 11-HYDROXY-.DELTA.9-TETRAHYDROCANNABINOL
     Route: 065
  10. 11-NOR-9-CARBOXY-.DELTA-9-TETRAHYDROCANNABINOL [Suspect]
     Active Substance: 11-NOR-9-CARBOXY-.DELTA-9-TETRAHYDROCANNABINOL
     Route: 065
  11. DRONABINOL [Suspect]
     Active Substance: DRONABINOL
     Route: 065
  12. QUETIAPINE [Suspect]
     Active Substance: QUETIAPINE
     Route: 065
  13. LAMOTRIGINE [Suspect]
     Active Substance: LAMOTRIGINE
     Route: 065
  14. ACETAMINOPHEN [Suspect]
     Active Substance: ACETAMINOPHEN
     Route: 065
  15. NALOXONE HCL [Suspect]
     Active Substance: NALOXONE HYDROCHLORIDE
     Route: 065
  16. COTININE [Suspect]
     Active Substance: COTININE
     Route: 065
  17. CAFFEINE [Suspect]
     Active Substance: CAFFEINE
     Route: 065

REACTIONS (1)
  - Toxicity to various agents [Fatal]
